FAERS Safety Report 5482611-8 (Version None)
Quarter: 2007Q4

REPORT INFORMATION
  Report Type: 
  Country: None (occurrence: None)
  Receive Date: 20071011
  Receipt Date: 20070816
  Transmission Date: 20080405
  Serious: No
  Sender: FDA-Public Use
  Company Number: A0671201A

PATIENT
  Age: 45 Year
  Sex: Female

DRUGS (12)
  1. TYKERB [Suspect]
     Indication: BREAST CANCER
     Dosage: 5TAB PER DAY
     Route: 048
     Dates: start: 20070811
  2. XELODA [Concomitant]
  3. GABAPENTIN [Concomitant]
     Dosage: 300MG PER DAY
  4. KLONOPIN [Concomitant]
     Dosage: .5MG TWICE PER DAY
  5. CYMBALTA [Concomitant]
     Dosage: 60MG PER DAY
  6. DILAUDID [Concomitant]
  7. OXYCONTIN [Concomitant]
     Dosage: 80MG THREE TIMES PER DAY
  8. DEXEDRINE [Concomitant]
     Dosage: 1MG PER DAY
  9. NEXIUM [Concomitant]
     Dosage: 40MG IN THE MORNING
  10. AMBIEN [Concomitant]
     Dosage: 12.5MG AT NIGHT
  11. LOVENOX [Concomitant]
  12. FOLIC ACID [Concomitant]

REACTIONS (1)
  - DIARRHOEA [None]
